FAERS Safety Report 14378255 (Version 6)
Quarter: 2020Q1

REPORT INFORMATION
  Report Type: Spontaneous
  Country: US (occurrence: US)
  Receive Date: 20180111
  Receipt Date: 20200128
  Transmission Date: 20200409
  Serious: No
  Sender: FDA-Public Use
  Company Number: US-ACTELION-A-NJ2018-165509

PATIENT
  Age: 70 Year
  Sex: Female
  Weight: 46.26 kg

DRUGS (8)
  1. TYVASO [Suspect]
     Active Substance: TREPROSTINIL
     Indication: PULMONARY HYPERTENSION
     Dosage: 0.6 MG/ML, 60 - 120 MCG QID
     Route: 055
     Dates: start: 20111121
  2. OXYCODONE [Concomitant]
     Active Substance: OXYCODONE
     Indication: PAIN
     Dosage: 325 MG, PRN
  3. DILTIAZEM. [Concomitant]
     Active Substance: DILTIAZEM
  4. TYVASO [Suspect]
     Active Substance: TREPROSTINIL
     Dosage: 18- 78 MCG QID
     Route: 055
  5. COUMADIN [Concomitant]
     Active Substance: WARFARIN SODIUM
  6. TRACLEER [Suspect]
     Active Substance: BOSENTAN
     Indication: PULMONARY HYPERTENSION
     Dosage: 125 MG, BID
     Route: 048
  7. TRACLEER [Suspect]
     Active Substance: BOSENTAN
     Dosage: 125 MG, BID
     Route: 048
  8. REVATIO [Concomitant]
     Active Substance: SILDENAFIL CITRATE

REACTIONS (13)
  - Anxiety [Unknown]
  - Asthenia [Unknown]
  - Productive cough [Unknown]
  - Lower respiratory tract congestion [Unknown]
  - Product dose omission [Unknown]
  - Cough [Recovering/Resolving]
  - Dysstasia [Unknown]
  - Influenza [Unknown]
  - Fatigue [Unknown]
  - Nasopharyngitis [Unknown]
  - Sinus congestion [Unknown]
  - Musculoskeletal chest pain [Unknown]
  - Ear disorder [Unknown]

NARRATIVE: CASE EVENT DATE: 201912
